FAERS Safety Report 15127682 (Version 3)
Quarter: 2019Q3

REPORT INFORMATION
  Report Type: Spontaneous
  Country: US (occurrence: US)
  Receive Date: 20180710
  Receipt Date: 20190722
  Transmission Date: 20191004
  Serious: No
  Sender: FDA-Public Use
  Company Number: US-ALLERGAN-1828311US

PATIENT
  Age: 89 Year
  Sex: Male

DRUGS (1)
  1. TRELSTAR [Suspect]
     Active Substance: TRIPTORELIN PAMOATE
     Indication: PROSTATE CANCER
     Dosage: 22.5 MG, EVERY 6 MONTH
     Route: 065
     Dates: start: 201511, end: 201511

REACTIONS (2)
  - Incorrect dose administered [Unknown]
  - Syringe issue [Unknown]
